FAERS Safety Report 7280528-X (Version None)
Quarter: 2011Q1

REPORT INFORMATION
  Report Type: 
  Country: None (occurrence: None)
  Receive Date: 20110208
  Receipt Date: 20110126
  Transmission Date: 20110831
  Serious: Yes (Hospitalization)
  Sender: FDA-Public Use
  Company Number: FR-SANOFI-AVENTIS-2011SA005128

PATIENT
  Age: 57 Year
  Sex: Male

DRUGS (5)
  1. ELISOR [Concomitant]
     Dates: end: 20101201
  2. NEBIVOLOL [Concomitant]
  3. PLAVIX [Suspect]
     Indication: STENT PLACEMENT
     Route: 048
     Dates: start: 20050101, end: 20110101
  4. EZETROL [Concomitant]
     Dates: start: 20101201
  5. PLAVIX [Suspect]
     Indication: MYOCARDIAL INFARCTION
     Route: 048
     Dates: start: 20050101, end: 20110101

REACTIONS (3)
  - NEPHROTIC SYNDROME [None]
  - ARTHRALGIA [None]
  - RASH [None]
